FAERS Safety Report 5827647-X (Version None)
Quarter: 2008Q3

REPORT INFORMATION
  Report Type: 
  Country: None (occurrence: None)
  Receive Date: 20080728
  Receipt Date: 20080715
  Transmission Date: 20090109
  Serious: Yes (Other)
  Sender: FDA-Public Use
  Company Number: 1000000043

PATIENT
  Age: 53 Year
  Sex: Female

DRUGS (6)
  1. ESCITALOPRAM OXALATE [Suspect]
     Indication: ALCOHOLIC PSYCHOSIS
     Dosage: 20 MG (10 MG, 2 IN 1 D),ORAL
     Route: 048
     Dates: end: 20070910
  2. SEROQUEL [Suspect]
     Indication: ALCOHOLIC PSYCHOSIS
     Dosage: 100 MG	(100 MG, 1  IN 1 D) ORAL; 200 MG (100 MG, 2 IN 1 D),ORAL
     Route: 048
     Dates: end: 20070801
  3. SEROQUEL [Suspect]
     Indication: ALCOHOLIC PSYCHOSIS
     Dosage: 100 MG	(100 MG, 1  IN 1 D) ORAL; 200 MG (100 MG, 2 IN 1 D),ORAL
     Route: 048
     Dates: start: 20070801, end: 20070910
  4. TIAPRIZAL(100 MILLIGRAM) [Suspect]
     Indication: ALCOHOLIC PSYCHOSIS
     Dosage: 100 MG (100 MG, 1 IN 1 D), ORAL
     Route: 048
     Dates: start: 20070801, end: 20070910
  5. IDALPREM [Suspect]
     Dosage: 5.5 MG (5.5 MG, 1 IN 1 D), ORAL
     Route: 048
     Dates: end: 20070910
  6. LITHIUM CARBONATE [Concomitant]

REACTIONS (5)
  - CONFUSIONAL STATE [None]
  - CULTURE URINE POSITIVE [None]
  - DRUG INTERACTION [None]
  - DYSKINESIA [None]
  - ESCHERICHIA INFECTION [None]
